FAERS Safety Report 7292205-X (Version None)
Quarter: 2011Q1

REPORT INFORMATION
  Report Type: 
  Country: None (occurrence: None)
  Receive Date: 20110215
  Receipt Date: 20110202
  Transmission Date: 20110831
  Serious: No
  Sender: FDA-Public Use
  Company Number: US-BIOGENIDEC-2011BI004975

PATIENT
  Sex: Female

DRUGS (1)
  1. TYSABRI [Suspect]
     Indication: MULTIPLE SCLEROSIS
     Route: 042
     Dates: start: 20100223

REACTIONS (7)
  - MUSCULAR WEAKNESS [None]
  - DISTURBANCE IN ATTENTION [None]
  - MOBILITY DECREASED [None]
  - MENTAL IMPAIRMENT [None]
  - VISION BLURRED [None]
  - CATARACT [None]
  - COORDINATION ABNORMAL [None]
